FAERS Safety Report 7406176-6 (Version None)
Quarter: 2011Q2

REPORT INFORMATION
  Report Type: 
  Country: None (occurrence: None)
  Receive Date: 20110411
  Receipt Date: 20110315
  Transmission Date: 20111010
  Serious: Yes (Life-Threatening, Hospitalization, Other)
  Sender: FDA-Public Use
  Company Number: US-BAYER-201039808NA

PATIENT
  Age: 34 Year
  Sex: Female
  Weight: 78.458 kg

DRUGS (7)
  1. YAZ [Suspect]
     Indication: FATIGUE
  2. MUCINEX [Concomitant]
  3. SYNTHROID [Concomitant]
  4. YAZ [Suspect]
     Indication: MENORRHAGIA
     Dosage: UNK UNK, UNK
     Route: 048
     Dates: start: 20080720, end: 20080917
  5. NASONEX [Concomitant]
  6. ZOLOFT [Concomitant]
     Indication: DEPRESSION
     Dosage: UNK
     Dates: start: 20010101
  7. YAZ [Suspect]
     Indication: DYSMENORRHOEA

REACTIONS (7)
  - FACTOR II MUTATION [None]
  - CHEST PAIN [None]
  - DYSPNOEA [None]
  - FATIGUE [None]
  - MENORRHAGIA [None]
  - PULMONARY EMBOLISM [None]
  - ANAEMIA [None]
